FAERS Safety Report 5699673-5 (Version None)
Quarter: 2008Q2

REPORT INFORMATION
  Report Type: 
  Country: None (occurrence: None)
  Receive Date: 20080410
  Receipt Date: 20080407
  Transmission Date: 20081010
  Serious: Yes (Life-Threatening, Hospitalization)
  Sender: FDA-Public Use
  Company Number: PHEH2007US06245

PATIENT
  Sex: Female

DRUGS (1)
  1. ZELNORM [Suspect]
     Indication: IRRITABLE BOWEL SYNDROME
     Dosage: UNK, UNK
     Dates: end: 20070401

REACTIONS (12)
  - ABDOMINAL PAIN [None]
  - CARDIAC DISORDER [None]
  - COLECTOMY [None]
  - COLONIC OBSTRUCTION [None]
  - EATING DISORDER [None]
  - ESCHERICHIA INFECTION [None]
  - GAIT DISTURBANCE [None]
  - INTESTINAL ISCHAEMIA [None]
  - PAIN [None]
  - PALPITATIONS [None]
  - POSTOPERATIVE WOUND INFECTION [None]
  - SWELLING [None]
